FAERS Safety Report 10738883 (Version 2)
Quarter: 2015Q2

REPORT INFORMATION
  Report Type: Spontaneous
  Country: US (occurrence: US)
  Receive Date: 20150126
  Receipt Date: 20150415
  Transmission Date: 20150821
  Serious: Yes (Other)
  Sender: FDA-Public Use
  Company Number: US-PFIZER INC-2015025903

PATIENT
  Age: 81 Year
  Sex: Male
  Weight: 104 kg

DRUGS (8)
  1. DULOXETINE [Suspect]
     Active Substance: DULOXETINE
     Indication: NEUROPATHY PERIPHERAL
     Dosage: 200 MG, UNK
     Dates: start: 20141120
  2. NEURONTIN [Suspect]
     Active Substance: GABAPENTIN
     Indication: NEUROPATHY PERIPHERAL
     Dosage: UNK
     Route: 048
     Dates: start: 2008
  3. SYNTHROID [Concomitant]
     Active Substance: LEVOTHYROXINE SODIUM
     Dosage: 25 MG, 2X/DAY
     Route: 048
     Dates: start: 2006
  4. LYRICA [Concomitant]
     Active Substance: PREGABALIN
     Dosage: 75 MG, 3X/DAY
  5. DULOXETINE [Suspect]
     Active Substance: DULOXETINE
     Dosage: 30 MG, UNK
     Route: 048
     Dates: start: 20141121, end: 20141123
  6. LYRICA [Concomitant]
     Active Substance: PREGABALIN
     Indication: NEUROPATHY PERIPHERAL
     Dosage: 75 MG, 2X/DAY
     Dates: start: 20150125
  7. LISINOPRIL-HYDROCHLOROTHIAZIDE [Concomitant]
     Active Substance: HYDROCHLOROTHIAZIDE\LISINOPRIL
     Dosage: 2 PILLS OF [LISINOPRIL 10MG]/[HYDROCHLOROTHIAZIDE 12.5MG], DAILY
     Route: 048
     Dates: start: 1998
  8. NEURONTIN [Suspect]
     Active Substance: GABAPENTIN
     Dosage: 300 MG, 2X/DAY
     Route: 048
     Dates: start: 2010, end: 20141217

REACTIONS (8)
  - Urinary incontinence [Recovered/Resolved]
  - Headache [Recovered/Resolved]
  - Asthenia [Recovered/Resolved]
  - Oedema peripheral [Recovered/Resolved]
  - Micturition disorder [Recovered/Resolved]
  - Fluid retention [Recovering/Resolving]
  - Thyroid function test abnormal [Recovered/Resolved]
  - Drug ineffective [Recovered/Resolved]

NARRATIVE: CASE EVENT DATE: 20141120
